FAERS Safety Report 23609291 (Version 1)
Quarter: 2024Q1

REPORT INFORMATION
  Report Type: Spontaneous
  Country: CN (occurrence: CN)
  Receive Date: 20240308
  Receipt Date: 20240308
  Transmission Date: 20240409
  Serious: Yes (Other)
  Sender: FDA-Public Use
  Company Number: None

PATIENT
  Age: 60 Year
  Sex: Female
  Weight: 65 kg

DRUGS (9)
  1. CYCLOPHOSPHAMIDE [Suspect]
     Active Substance: CYCLOPHOSPHAMIDE
     Indication: Breast cancer female
     Dosage: 0.9 G, ST, DILUTED WITH 50 ML OF 0.9 % SODIUM CHLORIDE, THIRD CHEMOTHERAPY, ONE TIME IN ONE DAY
     Route: 042
     Dates: start: 20240225, end: 20240225
  2. DEXTROSE [Suspect]
     Active Substance: DEXTROSE\DEXTROSE MONOHYDRATE
     Indication: Medication dilution
     Dosage: 250 ML, QD, USED TO DILUTE 60 ML OF SHENMAI
     Route: 041
     Dates: start: 20240225, end: 20240226
  3. EPIRUBICIN HYDROCHLORIDE [Suspect]
     Active Substance: EPIRUBICIN HYDROCHLORIDE
     Indication: Breast cancer female
     Dosage: 130 MG, ST, DILUTED WITH 500 ML OF 0.9 % SODIUM CHLORIDE, THIRD CHEMOTHERAPY, ONE TIME IN ONE DAY
     Route: 041
     Dates: start: 20240225, end: 20240225
  4. SODIUM CHLORIDE [Suspect]
     Active Substance: SODIUM CHLORIDE
     Indication: Medication dilution
     Dosage: 50 ML, ST, USED TO DILUTE 0.9 G OF CYCLOPHOSPHAMIDE,ONE TIME IN ONE DAY
     Route: 042
     Dates: start: 20240225, end: 20240225
  5. SODIUM CHLORIDE [Suspect]
     Active Substance: SODIUM CHLORIDE
     Dosage: 500 ML, ST, USED TO DILUTE 130 MG OF EPIRUBICIN HYDROCHLORIDE, ONE TIME IN ONE DAY
     Route: 041
     Dates: start: 20240225, end: 20240225
  6. SODIUM CHLORIDE [Suspect]
     Active Substance: SODIUM CHLORIDE
     Dosage: 100 ML, QD, USED TO DILUTE 8 MG OF ONDANSETRON HYDROCHLORIDE
     Route: 041
     Dates: start: 20240225, end: 20240226
  7. SODIUM CHLORIDE [Suspect]
     Active Substance: SODIUM CHLORIDE
     Dosage: 250 ML, ST, ONE TIME IN ONE DAY
     Route: 041
     Dates: start: 20240225
  8. ONDANSETRON HYDROCHLORIDE [Suspect]
     Active Substance: ONDANSETRON HYDROCHLORIDE
     Indication: Breast cancer female
     Dosage: 8 MG, QD, DILUTED WITH 100 ML OF 0.9 % SODIUM CHLORIDE, THIRD CHEMOTHERAPY
     Route: 041
     Dates: start: 20240225, end: 20240226
  9. ONDANSETRON HYDROCHLORIDE [Suspect]
     Active Substance: ONDANSETRON HYDROCHLORIDE
     Indication: Adverse drug reaction

REACTIONS (3)
  - Hypoaesthesia [Recovering/Resolving]
  - Vomiting [Recovered/Resolved]
  - Nausea [Recovered/Resolved]

NARRATIVE: CASE EVENT DATE: 20240226
